FAERS Safety Report 8722496 (Version 2)
Quarter: 2012Q4

REPORT INFORMATION
  Report Type: 
  Country: DE (occurrence: DE)
  Receive Date: 20120814
  Receipt Date: 20120913
  Transmission Date: 20130627
  Serious: Yes (Hospitalization)
  Sender: FDA-Public Use
  Company Number: DE-ELI_LILLY_AND_COMPANY-DE201207005480

PATIENT
  Sex: Male

DRUGS (6)
  1. BYDUREON [Suspect]
     Indication: TYPE 2 DIABETES MELLITUS
     Dosage: 2 mg, weekly (1/W)
     Route: 058
     Dates: start: 201205, end: 20120719
  2. ATACAND [Concomitant]
  3. LORANO [Concomitant]
  4. METFORMIN [Concomitant]
     Dosage: 2000 mg, qd
  5. TAMSULOSIN [Concomitant]
  6. BISOPROLOL [Concomitant]
     Dosage: 5 mg, qd

REACTIONS (3)
  - Injection site abscess [Recovering/Resolving]
  - Glycosylated haemoglobin increased [Unknown]
  - Blood glucose increased [Unknown]
